FAERS Safety Report 25082933 (Version 3)
Quarter: 2025Q2

REPORT INFORMATION
  Report Type: Spontaneous
  Country: US (occurrence: US)
  Receive Date: 20250317
  Receipt Date: 20250425
  Transmission Date: 20250717
  Serious: No
  Sender: ROCHE
  Company Number: US-ROCHE-10000228536

PATIENT
  Age: 71 Year
  Sex: Male

DRUGS (35)
  1. XOLAIR PFS [Suspect]
     Active Substance: OMALIZUMAB
     Indication: Asthma
     Dosage: 75 MG 0.5 ML
     Route: 058
  2. XOLAIR PFS [Suspect]
     Active Substance: OMALIZUMAB
     Dosage: 75 MG 0.5 ML
     Route: 058
  3. XOLAIR PFS [Suspect]
     Active Substance: OMALIZUMAB
     Dosage: 75 MG 0.5 ML
     Route: 058
  4. XOLAIR PFS [Suspect]
     Active Substance: OMALIZUMAB
     Dosage: 75 MG 0.5 ML
     Route: 058
  5. ALBUTEROL [Concomitant]
     Active Substance: ALBUTEROL
  6. ATORVASTATIN [Concomitant]
     Active Substance: ATORVASTATIN
  7. AZITHROMYCIN [Concomitant]
     Active Substance: AZITHROMYCIN
  8. CETIRIZINE H TAB [Concomitant]
  9. CETIRIZINE H TAB [Concomitant]
  10. DOXAZOCIN ME POW [Concomitant]
  11. FERROUS SULFATE TBE 324 [Concomitant]
  12. FLUTICASONE [Concomitant]
     Active Substance: FLUTICASONE
  13. FLUTICASONE [Concomitant]
     Active Substance: FLUTICASONE
  14. GUAIFENESIN POW [Concomitant]
  15. GUAIFENESIN POW [Concomitant]
  16. Hydroxyzine TAB [Concomitant]
  17. Hydroxyzine TAB [Concomitant]
  18. METFORMIN [Concomitant]
     Active Substance: METFORMIN HYDROCHLORIDE
  19. METFORMIN [Concomitant]
     Active Substance: METFORMIN HYDROCHLORIDE
  20. Mirtazapine POW [Concomitant]
  21. Mirtazapine POW [Concomitant]
  22. NICOTINE PT2 [Concomitant]
  23. NICOTINE PT2 [Concomitant]
  24. Potassium CH POW [Concomitant]
  25. Potassium CH POW [Concomitant]
  26. preservision cap [Concomitant]
  27. preservision cap [Concomitant]
  28. singulair tab [Concomitant]
  29. singulair tab [Concomitant]
  30. spiriva hand cap [Concomitant]
  31. spiriva hand cap [Concomitant]
  32. symbicort AER 160 [Concomitant]
  33. symbicort AER 160 [Concomitant]
  34. XYLIMELTS DIS [Concomitant]
  35. XYLIMELTS DIS [Concomitant]

REACTIONS (3)
  - Injection site pain [Recovered/Resolved]
  - Syringe issue [Unknown]
  - Injection related reaction [Unknown]

NARRATIVE: CASE EVENT DATE: 20250201
